FAERS Safety Report 6575832-4 (Version None)
Quarter: 2010Q1

REPORT INFORMATION
  Report Type: 
  Country: None (occurrence: None)
  Receive Date: 20100209
  Receipt Date: 20100126
  Transmission Date: 20100710
  Serious: Yes (Death)
  Sender: FDA-Public Use
  Company Number: DE-MYLANLABS-2010S1001261

PATIENT
  Age: 68 Year
  Sex: Female

DRUGS (11)
  1. HALOPERIDOL [Suspect]
     Indication: SCHIZOPHRENIA, PARANOID TYPE
     Dosage: ADMINISTERED ON HOSPITAL DAY 3
  2. HALOPERIDOL [Suspect]
     Dosage: ADMINISTERED ON HOSPITAL DAY 5
  3. HALOPERIDOL [Suspect]
     Dosage: ADMINISTERED ON HOSPITAL DAY 6
  4. HALOPERIDOL [Suspect]
     Dosage: ADMINISTERED ON HOSPITAL DAY 7 (DAY OF DEATH)
  5. OLANZAPINE [Suspect]
     Indication: SCHIZOPHRENIA, PARANOID TYPE
     Dosage: ADMINISTERED AT THIS DOSAGE ON HOSPITAL DAYS 1-4
  6. OLANZAPINE [Suspect]
     Dosage: ADMINISTERED AT THIS DOSAGE ON HOSPITAL DAYS 5-7
  7. LORAZEPAM [Concomitant]
     Dosage: ADMINISTERED AT THIS DOSAGE ON HOSPITAL DAYS 1-2
  8. LORAZEPAM [Concomitant]
     Dosage: ADMINISTERED ON HOSPITAL DAY 3
  9. LORAZEPAM [Concomitant]
     Dosage: ADMINISTERED AT THIS DOSAGE ON HOSPITAL DAYS 4-5
  10. LORAZEPAM [Concomitant]
     Dosage: ADMINISTERED AT THIS DOSAGE ON HOSPITAL DAY 6
  11. LORAZEPAM [Concomitant]
     Dosage: ADMINISTERED AT THIS DOSAGE ON HOSPITAL DAY 7

REACTIONS (1)
  - PULMONARY EMBOLISM [None]
